FAERS Safety Report 9106538 (Version 1)
Quarter: 2013Q1

REPORT INFORMATION
  Report Type: Spontaneous
  Country: US (occurrence: US)
  Receive Date: 20130221
  Receipt Date: 20130221
  Transmission Date: 20140127
  Serious: Yes (Other)
  Sender: FDA-Public Use
  Company Number: PHEH2013US004323

PATIENT
  Age: 43 Year
  Sex: Female

DRUGS (2)
  1. TEGRETOL [Suspect]
  2. LAMICTAL [Concomitant]

REACTIONS (3)
  - Epilepsy [Unknown]
  - Multiple sclerosis [Unknown]
  - Dizziness [Unknown]
